FAERS Safety Report 5689852-5 (Version None)
Quarter: 2008Q1

REPORT INFORMATION
  Report Type: 
  Country: None (occurrence: None)
  Receive Date: 20080331
  Receipt Date: 20080331
  Transmission Date: 20080703
  Serious: Yes (Other)
  Sender: FDA-Public Use
  Company Number: None

PATIENT
  Age: 7 Year
  Sex: Male
  Weight: 30.8446 kg

DRUGS (1)
  1. DIASTAT ACUDIAL [Suspect]
     Indication: CONVULSION
     Dosage: 10 MG  AS NEEDED  RECTAL
     Route: 054
     Dates: start: 20010720, end: 20080330

REACTIONS (4)
  - DEVICE BREAKAGE [None]
  - INCORRECT DOSE ADMINISTERED [None]
  - MEDICATION ERROR [None]
  - PHARMACEUTICAL PRODUCT COMPLAINT [None]
